FAERS Safety Report 8834307 (Version 3)
Quarter: 2012Q4

REPORT INFORMATION
  Report Type: 
  Country: US (occurrence: None)
  Receive Date: 20121009
  Receipt Date: 20121114
  Transmission Date: 20130627
  Serious: Yes (Hospitalization, Other)
  Sender: FDA-Public Use
  Company Number: ACO_31770_2012

PATIENT
  Age: 45 Year
  Sex: Female

DRUGS (6)
  1. AMPYRA [Suspect]
     Indication: DRUG USE FOR UNKNOWN INDICATION
     Dosage: 10 mg, q 12 hrs
     Dates: start: 20120420, end: 20120917
  2. AMANTADINE (AMANTADINE HYDROCHLORIDE) [Concomitant]
  3. BACLOFEN (BACLOFEN) [Concomitant]
  4. PRIMIDONE (PRIMIDONE) [Concomitant]
  5. DETROL LA (TOLTERODINE I-TARTRATE) [Concomitant]
  6. TYLENOL (PARACETAMOL) [Concomitant]

REACTIONS (18)
  - Multiple sclerosis relapse [None]
  - Alanine aminotransferase increased [None]
  - White blood cells urine positive [None]
  - Urine analysis abnormal [None]
  - Fatigue [None]
  - Malaise [None]
  - Migraine [None]
  - Ventricular extrasystoles [None]
  - Mobility decreased [None]
  - Activities of daily living impaired [None]
  - Tremor [None]
  - Muscle spasticity [None]
  - Somnolence [None]
  - Gait disturbance [None]
  - Depressed level of consciousness [None]
  - Dysphagia [None]
  - Pollakiuria [None]
  - Urinary tract infection [None]
